FAERS Safety Report 8485767-8 (Version None)
Quarter: 2012Q3

REPORT INFORMATION
  Report Type: 
  Country: None (occurrence: None)
  Receive Date: 20120703
  Receipt Date: 20120629
  Transmission Date: 20120928
  Serious: Yes (Other)
  Sender: FDA-Public Use
  Company Number: US-ABBOTT-12P-163-0951963-00

PATIENT
  Sex: Female
  Weight: 53.118 kg

DRUGS (17)
  1. VITAMIN D [Concomitant]
     Indication: PRODUCT USED FOR UNKNOWN INDICATION
     Route: 048
     Dates: start: 20120520
  2. FAXAN [Concomitant]
     Indication: COLITIS ULCERATIVE
     Route: 048
     Dates: start: 20120322
  3. ENOXAPARIN [Concomitant]
     Indication: BLOOD DISORDER
  4. HUMIRA [Suspect]
     Indication: COLITIS ULCERATIVE
     Route: 050
     Dates: start: 20120322
  5. FOLIC ACID [Concomitant]
     Route: 048
     Dates: start: 20120520
  6. VITAMIN B-12 [Concomitant]
     Indication: PRODUCT USED FOR UNKNOWN INDICATION
     Route: 048
     Dates: start: 20120520
  7. AZATHIOPRINE [Concomitant]
     Indication: COLITIS ULCERATIVE
     Route: 048
     Dates: start: 20120322
  8. TEA (GREEN TEA AND ICED TEA) [Concomitant]
     Indication: PRODUCT USED FOR UNKNOWN INDICATION
     Route: 048
     Dates: start: 20120322, end: 20120405
  9. MULTI-VITAMINS [Concomitant]
     Indication: PRODUCT USED FOR UNKNOWN INDICATION
     Route: 048
     Dates: start: 20120322
  10. ENOXAPARIN [Concomitant]
     Indication: PROPHYLAXIS
     Route: 050
     Dates: start: 20120617
  11. ACETAMINOPHEN [Concomitant]
     Indication: COLITIS
     Route: 048
     Dates: start: 20120521, end: 20120529
  12. PREDNISONE [Concomitant]
     Indication: COLITIS ULCERATIVE
     Route: 048
     Dates: start: 20120322
  13. ACETAMINOPHEN [Concomitant]
     Indication: GASTROINTESTINAL PAIN
  14. CALCIUM CARBONATE [Concomitant]
     Indication: DYSPEPSIA
     Route: 048
     Dates: start: 20120522
  15. PREPARATION H [Concomitant]
     Indication: HAEMORRHOIDS
     Dosage: TOPICAL: FACE, SCALP
     Route: 061
     Dates: start: 20120509, end: 20120606
  16. FOLIC ACID [Concomitant]
     Indication: PRODUCT USED FOR UNKNOWN INDICATION
     Route: 048
     Dates: start: 20120520
  17. WINE [Concomitant]
     Indication: PRODUCT USED FOR UNKNOWN INDICATION
     Route: 048
     Dates: start: 20120420, end: 20120420

REACTIONS (5)
  - COLITIS [None]
  - GASTROINTESTINAL PAIN [None]
  - DYSPEPSIA [None]
  - HAEMORRHOIDS [None]
  - ABORTION SPONTANEOUS [None]
